FAERS Safety Report 9748576 (Version 1)
Quarter: 2013Q4

REPORT INFORMATION
  Report Type: Spontaneous
  Country: GB (occurrence: None)
  Receive Date: 20131209
  Receipt Date: 20131209
  Transmission Date: 20140711
  Serious: No
  Sender: FDA-Public Use
  Company Number: GB2013K4606SPO

PATIENT
  Age: 74 Year
  Sex: Male
  Weight: 88.9 kg

DRUGS (1)
  1. LANSOPRAZOLE [Suspect]
     Route: 048
     Dates: start: 2012, end: 20131016

REACTIONS (7)
  - Atrioventricular block second degree [None]
  - Atrioventricular block complete [None]
  - Bradycardia [None]
  - Cardiac disorder [None]
  - Cardiac failure [None]
  - Atrioventricular block second degree [None]
  - Bundle branch block left [None]
